FAERS Safety Report 4721606-6 (Version None)
Quarter: 2005Q3

REPORT INFORMATION
  Report Type: 
  Country: None (occurrence: None)
  Receive Date: 20050721
  Receipt Date: 20041227
  Transmission Date: 20060218
  Serious: Yes (Hospitalization)
  Sender: FDA-Public Use
  Company Number: US-BRISTOL-MYERS SQUIBB COMPANY-12806774

PATIENT
  Age: 54 Year
  Sex: Male
  Weight: 90 kg

DRUGS (2)
  1. COUMADIN [Suspect]
     Indication: THROMBOSIS
     Dosage: STARTED WARFARIN OR COUMADIN 20 TO 22-NOV-2004;THEN 1MG WARFARIN ON 23-NOV-2004;THEN 7.5MG DAILY
     Route: 048
     Dates: start: 20041101
  2. NONE [Concomitant]

REACTIONS (7)
  - FATIGUE [None]
  - INTERNATIONAL NORMALISED RATIO DECREASED [None]
  - LIMB DISCOMFORT [None]
  - PAIN [None]
  - PELVIC PAIN [None]
  - STOMACH DISCOMFORT [None]
  - SWELLING [None]
